FAERS Safety Report 7780306-9 (Version None)
Quarter: 2011Q3

REPORT INFORMATION
  Report Type: 
  Country: None (occurrence: None)
  Receive Date: 20110927
  Receipt Date: 20110916
  Transmission Date: 20111222
  Serious: Yes (Hospitalization)
  Sender: FDA-Public Use
  Company Number: US-JNJFOC-20110907556

PATIENT
  Sex: Female
  Weight: 80.74 kg

DRUGS (3)
  1. REMICADE [Suspect]
     Indication: COLITIS ULCERATIVE
     Dosage: 2 DOSES
     Route: 042
     Dates: start: 20110705
  2. REMICADE [Suspect]
     Dosage: 2 DOSES
     Route: 042
     Dates: start: 20110701
  3. ANTIBIOTIC [Concomitant]

REACTIONS (5)
  - PERICARDIAL EFFUSION [None]
  - PNEUMONIA [None]
  - WHITE BLOOD CELL COUNT ABNORMAL [None]
  - PLEURAL EFFUSION [None]
  - INFLAMMATION [None]
